FAERS Safety Report 17675675 (Version 1)
Quarter: 2020Q2

REPORT INFORMATION
  Report Type: Spontaneous
  Country: US (occurrence: US)
  Receive Date: 20200416
  Receipt Date: 20200416
  Transmission Date: 20200714
  Serious: No
  Sender: FDA-Public Use
  Company Number: None

PATIENT
  Age: 87 Year
  Sex: Male
  Weight: 68.85 kg

DRUGS (11)
  1. ZANTAC [Concomitant]
     Active Substance: RANITIDINE HYDROCHLORIDE
  2. EPINASTINE. [Concomitant]
     Active Substance: EPINASTINE HYDROCHLORIDE
  3. RANIBIZUMAB. [Concomitant]
     Active Substance: RANIBIZUMAB
  4. GLUCOSE [Concomitant]
     Active Substance: DEXTROSE
  5. NEPHPLEX [Concomitant]
     Active Substance: VITAMINS
  6. NASONEX [Concomitant]
     Active Substance: MOMETASONE FUROATE
  7. LIBTAYO [Suspect]
     Active Substance: CEMIPLIMAB-RWLC
     Indication: SQUAMOUS CELL CARCINOMA
     Route: 048
     Dates: start: 20200305, end: 20200416
  8. IMATINIB. [Concomitant]
     Active Substance: IMATINIB MESYLATE
  9. AMLODIPINE [Concomitant]
     Active Substance: AMLODIPINE BESYLATE
  10. IRON [Concomitant]
     Active Substance: IRON
  11. TRIAMCINOLONE [Concomitant]
     Active Substance: TRIAMCINOLONE

REACTIONS (1)
  - Death [None]

NARRATIVE: CASE EVENT DATE: 20200416
